FAERS Safety Report 17169111 (Version 1)
Quarter: 2019Q4

REPORT INFORMATION
  Report Type: Report from Study
  Country: BR (occurrence: BR)
  Receive Date: 20191218
  Receipt Date: 20191218
  Transmission Date: 20200122
  Serious: Yes (Hospitalization)
  Sender: FDA-Public Use
  Company Number: BR-ROCHE-2493321

PATIENT
  Age: 47 Year
  Sex: Female
  Weight: 90.35 kg

DRUGS (44)
  1. OCRELIZUMAB. [Suspect]
     Active Substance: OCRELIZUMAB
     Dosage: OLE-WEEK 144
     Route: 042
     Dates: start: 20170822, end: 20170822
  2. OCRELIZUMAB. [Suspect]
     Active Substance: OCRELIZUMAB
     Dosage: OLE-WEEK 240
     Route: 042
     Dates: start: 20190731, end: 20190731
  3. CHLORPROMAZINE. [Concomitant]
     Active Substance: CHLORPROMAZINE
     Dosage: 10 DROP
     Route: 065
     Dates: start: 20191113, end: 20191113
  4. DRAMAMINE [Concomitant]
     Active Substance: DIMENHYDRINATE
     Route: 065
     Dates: start: 20130206
  5. OCRELIZUMAB. [Suspect]
     Active Substance: OCRELIZUMAB
     Dosage: OLE-WEEK 2
     Route: 042
     Dates: start: 20141125, end: 20141125
  6. OCRELIZUMAB. [Suspect]
     Active Substance: OCRELIZUMAB
     Dosage: OLE-WEEK 72
     Route: 042
     Dates: start: 20160405, end: 20160405
  7. OCRELIZUMAB. [Suspect]
     Active Substance: OCRELIZUMAB
     Dosage: OLE-WEEK 168
     Route: 042
     Dates: start: 20180206, end: 20180206
  8. METHYLPREDNISOLONE. [Concomitant]
     Active Substance: METHYLPREDNISOLONE
     Dosage: 20/DEC/2012, 24/JAN/2013, 13/JUN/2013, 19/NOV/2013, 22/MAY/2014, 13/NOV/2014, 25/NOV/2014, 30/APR/20
     Route: 065
  9. CHLORPROMAZINE. [Concomitant]
     Active Substance: CHLORPROMAZINE
     Route: 065
     Dates: start: 20191203, end: 20191203
  10. MIRTAZAPINE. [Concomitant]
     Active Substance: MIRTAZAPINE
     Route: 065
     Dates: start: 20191109, end: 20191111
  11. AMPICILLIN [Concomitant]
     Active Substance: AMPICILLIN
     Route: 065
     Dates: start: 20191112, end: 20191117
  12. MIRTAZAPINE. [Concomitant]
     Active Substance: MIRTAZAPINE
     Route: 065
     Dates: start: 20191201
  13. PLACEBO [Suspect]
     Active Substance: UNSPECIFIED INGREDIENT
     Indication: RELAPSING-REMITTING MULTIPLE SCLEROSIS
     Dosage: 24/OCT/2014
     Route: 058
     Dates: start: 20121220, end: 20141110
  14. OCRELIZUMAB. [Suspect]
     Active Substance: OCRELIZUMAB
     Dosage: OLE-WEEK 192
     Route: 042
     Dates: start: 20180810, end: 20180810
  15. ONDANSETRON [Concomitant]
     Active Substance: ONDANSETRON
     Dosage: 1 AMPULE
     Route: 065
     Dates: start: 20191108, end: 20191108
  16. OCRELIZUMAB. [Suspect]
     Active Substance: OCRELIZUMAB
     Dosage: WEEK 24
     Route: 042
     Dates: start: 20130613, end: 20130613
  17. OCRELIZUMAB. [Suspect]
     Active Substance: OCRELIZUMAB
     Dosage: OLE-WEEK 24
     Route: 042
     Dates: start: 20150430, end: 20150430
  18. OCRELIZUMAB. [Suspect]
     Active Substance: OCRELIZUMAB
     Dosage: OLE-WEEK 96
     Route: 042
     Dates: start: 20160923, end: 20160923
  19. ENOXAPARIN [Concomitant]
     Active Substance: ENOXAPARIN
     Route: 065
     Dates: start: 20191108, end: 20191121
  20. GABALON [Concomitant]
     Active Substance: BACLOFEN
     Dosage: 1 TABLET
     Route: 065
     Dates: start: 20191110, end: 20191121
  21. AMPICILLIN;SULBACTAM [Concomitant]
     Active Substance: AMPICILLIN SODIUM\SULBACTAM SODIUM
     Indication: PNEUMONIA
     Route: 065
     Dates: start: 20191111
  22. GLUCOSAMINE AND CHONDROITIN [Concomitant]
     Active Substance: CHONDROITIN SULFATE (BOVINE)\GLUCOSAMINE HYDROCHLORIDE
     Indication: PAIN
     Dosage: 1 UNIT
     Route: 065
     Dates: start: 20160622
  23. OCRELIZUMAB. [Suspect]
     Active Substance: OCRELIZUMAB
     Dosage: WEEK 48
     Route: 042
     Dates: start: 20131119, end: 20131119
  24. OCRELIZUMAB. [Suspect]
     Active Substance: OCRELIZUMAB
     Indication: RELAPSING-REMITTING MULTIPLE SCLEROSIS
     Dosage: OLE-WEEK 0?OCRELIZUMAB 600 MG INTRAVENOUS (IV) AS 300 MG INFUSIONS ON DAYS 1 AND 15 FOR THE FIRST DO
     Route: 042
     Dates: start: 20141113, end: 20141113
  25. NIVOLUMAB [Concomitant]
     Active Substance: NIVOLUMAB
     Route: 065
     Dates: start: 20191110, end: 20191110
  26. TAZOCIN [Concomitant]
     Active Substance: PIPERACILLIN SODIUM\TAZOBACTAM SODIUM
     Indication: PNEUMONIA
     Route: 065
     Dates: start: 20191201
  27. PEMBROLIZUMAB. [Concomitant]
     Active Substance: PEMBROLIZUMAB
     Route: 065
     Dates: start: 20191111
  28. OCRELIZUMAB. [Suspect]
     Active Substance: OCRELIZUMAB
     Indication: RELAPSING-REMITTING MULTIPLE SCLEROSIS
     Dosage: BASELINE (WEEK 1)?BLINDED OCRELIZUMAB SPLIT DOSAGE ON DAYS 1 AND 15 FOR THE FIRST DOSE AND AS A SING
     Route: 042
     Dates: start: 20121220, end: 20121220
  29. OCRELIZUMAB. [Suspect]
     Active Substance: OCRELIZUMAB
     Dosage: WEEK 2
     Route: 042
     Dates: start: 20130124, end: 20130124
  30. OCRELIZUMAB. [Suspect]
     Active Substance: OCRELIZUMAB
     Dosage: WEEK 72
     Route: 042
     Dates: start: 20140522, end: 20140522
  31. OLANZAPINE. [Concomitant]
     Active Substance: OLANZAPINE
     Route: 065
     Dates: start: 20191108, end: 20191109
  32. CHLORPROMAZINE. [Concomitant]
     Active Substance: CHLORPROMAZINE
     Route: 065
     Dates: start: 20191111, end: 20191112
  33. OCRELIZUMAB. [Suspect]
     Active Substance: OCRELIZUMAB
     Dosage: OLE-WEEK 48
     Route: 042
     Dates: start: 20151020, end: 20151020
  34. OCRELIZUMAB. [Suspect]
     Active Substance: OCRELIZUMAB
     Dosage: OLE-WEEK 120
     Route: 042
     Dates: start: 20170307, end: 20170307
  35. PROMETAZINA [PROMETHAZINE] [Concomitant]
     Dosage: 24/JAN/2013, 13/JUN/2013, 19/NOV/2013, 22/MAY/2014, 13/NOV/2014, 25/NOV/2014, 30/APR/2015, 20/OCT/20
     Route: 065
  36. PARACETAMOL [Concomitant]
     Active Substance: ACETAMINOPHEN
     Indication: PAIN
     Dosage: 22/MAY/2014, 13/NOV/2014, 25/NOV/2014, 30/APR/2015, 20/OCT/2015, 05/APR/2016, 23/SEP/2016, 07/MAR/20
     Route: 065
  37. PARACETAMOL [Concomitant]
     Active Substance: ACETAMINOPHEN
     Route: 065
     Dates: start: 20140717, end: 20140820
  38. CHLORPROMAZINE. [Concomitant]
     Active Substance: CHLORPROMAZINE
     Dosage: 5 DROP
     Route: 065
     Dates: start: 20191113, end: 20191113
  39. VITAMIN C [Concomitant]
     Active Substance: ASCORBIC ACID
     Dosage: 1 TABLET
     Route: 065
     Dates: start: 20191110, end: 20191121
  40. OCRELIZUMAB. [Suspect]
     Active Substance: OCRELIZUMAB
     Dosage: OLE-WEEK 216
     Route: 042
     Dates: start: 20190125, end: 20190125
  41. CHLORPROMAZINE. [Concomitant]
     Active Substance: CHLORPROMAZINE
     Route: 065
     Dates: start: 20191109, end: 20191109
  42. MIRTAZAPINE. [Concomitant]
     Active Substance: MIRTAZAPINE
     Route: 065
     Dates: start: 20191114, end: 20191121
  43. SYNTHROID [Concomitant]
     Active Substance: LEVOTHYROXINE SODIUM
     Indication: HYPOTHYROIDISM
     Route: 065
     Dates: start: 201206
  44. HIGROTON [Concomitant]
     Active Substance: CHLORTHALIDONE
     Indication: HYPERTENSION
     Route: 065
     Dates: start: 20170110

REACTIONS (1)
  - Pneumonia aspiration [Not Recovered/Not Resolved]

NARRATIVE: CASE EVENT DATE: 20191130
